FAERS Safety Report 24548736 (Version 2)
Quarter: 2025Q1

REPORT INFORMATION
  Report Type: Spontaneous
  Country: US (occurrence: US)
  Receive Date: 20241025
  Receipt Date: 20250102
  Transmission Date: 20250409
  Serious: Yes (Death)
  Sender: BAYER HEALTHCARE PHARMACEUTICALS INC.
  Company Number: US-BAYER-2024A151493

PATIENT
  Age: 77 Year
  Sex: Female

DRUGS (1)
  1. KERENDIA [Suspect]
     Active Substance: FINERENONE
     Indication: Renal disorder
     Dates: end: 20230312

REACTIONS (7)
  - Nausea [Fatal]
  - Dizziness [Fatal]
  - Dizziness [Fatal]
  - Abdominal pain [Fatal]
  - Blood potassium increased [Fatal]
  - Hepatic failure [Fatal]
  - Renal failure [Fatal]

NARRATIVE: CASE EVENT DATE: 20230301
